FAERS Safety Report 10909742 (Version 3)
Quarter: 2015Q2

REPORT INFORMATION
  Report Type: Spontaneous
  Country: US (occurrence: US)
  Receive Date: 20150312
  Receipt Date: 20150401
  Transmission Date: 20150821
  Serious: Yes (Hospitalization)
  Sender: FDA-Public Use
  Company Number: US-JNJFOC-20150308668

PATIENT
  Age: 81 Year
  Sex: Female
  Weight: 58 kg

DRUGS (12)
  1. IMBRUVICA [Suspect]
     Active Substance: IBRUTINIB
     Indication: THERAPY NAIVE
  2. ATARAX [Concomitant]
     Active Substance: HYDROXYZINE\HYDROXYZINE HYDROCHLORIDE
     Dosage: QID
     Route: 048
  3. VITAMIN K [Concomitant]
     Active Substance: PHYTONADIONE
     Route: 048
  4. NYSTATIN. [Concomitant]
     Active Substance: NYSTATIN
     Dosage: 100000/ML SUSPENSION 10ML BID
     Route: 048
  5. IMBRUVICA [Suspect]
     Active Substance: IBRUTINIB
     Indication: THERAPY NAIVE
     Dates: start: 201501, end: 20150217
  6. ACETYLSALICYLIC ACID [Concomitant]
     Active Substance: ASPIRIN
     Dosage: ENTERIC TABLET
     Route: 048
  7. DYAZIDE [Concomitant]
     Active Substance: HYDROCHLOROTHIAZIDE\TRIAMTERENE
     Dosage: 37.5-25MG QD
     Route: 048
  8. IMBRUVICA [Suspect]
     Active Substance: IBRUTINIB
     Indication: CHRONIC LYMPHOCYTIC LEUKAEMIA
  9. IMBRUVICA [Suspect]
     Active Substance: IBRUTINIB
     Indication: CHRONIC LYMPHOCYTIC LEUKAEMIA
     Dates: start: 201501, end: 20150217
  10. HYDROCHLOROTHIAZIDE. [Concomitant]
     Active Substance: HYDROCHLOROTHIAZIDE
     Route: 048
  11. CALCIUM W/COLECALCIFEROL [Concomitant]
     Route: 048
  12. PROCHLORPERAZINE MALEATE. [Concomitant]
     Active Substance: PROCHLORPERAZINE MALEATE
     Indication: NAUSEA
     Dosage: Q6H
     Route: 048

REACTIONS (6)
  - Fatigue [Not Recovered/Not Resolved]
  - Liver function test abnormal [Recovering/Resolving]
  - Ascites [Unknown]
  - Platelet count decreased [Unknown]
  - Hepatic lesion [Unknown]
  - Deep vein thrombosis [Recovering/Resolving]

NARRATIVE: CASE EVENT DATE: 20150105
